FAERS Safety Report 4994287-4 (Version None)
Quarter: 2006Q2

REPORT INFORMATION
  Report Type: 
  Country: None (occurrence: None)
  Receive Date: 20060503
  Receipt Date: 20060422
  Transmission Date: 20061013
  Serious: Yes (Other)
  Sender: FDA-Public Use
  Company Number: 2006054198

PATIENT
  Age: 21 Year
  Sex: Female
  Weight: 49.8957 kg

DRUGS (2)
  1. BENYLIN 1 ALL-IN-ONE COLD AND FLU DAY (PARACETAMOL, PSEUDOEPHEDRINE, D [Suspect]
     Dosage: ORAL
     Route: 048
     Dates: start: 20060422, end: 20060422
  2. BENYLIN ALL IN ONE COLD/FLU NIGHT (DIPHENHYDRAMINE, PARACETAMOL, PSEUD [Suspect]
     Dosage: ORAL
     Route: 048
     Dates: start: 20060422, end: 20060422

REACTIONS (6)
  - COMMUNICATION DISORDER [None]
  - DYSKINESIA [None]
  - ECHOLALIA [None]
  - MUSCLE TWITCHING [None]
  - PERIPHERAL COLDNESS [None]
  - PHARYNGITIS STREPTOCOCCAL [None]
